FAERS Safety Report 6699567-2 (Version None)
Quarter: 2010Q2

REPORT INFORMATION
  Report Type: 
  Country: None (occurrence: None)
  Receive Date: 20100427
  Receipt Date: 20100427
  Transmission Date: 20101027
  Serious: Yes (Hospitalization)
  Sender: FDA-Public Use
  Company Number: None

PATIENT
  Sex: Male
  Weight: 67.9035 kg

DRUGS (1)
  1. BEVICIZUMAB [Suspect]
     Indication: LUNG ADENOCARCINOMA
     Dosage: 15 MG/KG -1040 MG- ONCE EVERY 21-DAYS IV DRIP
     Route: 041
     Dates: start: 20100324, end: 20100324

REACTIONS (2)
  - ILEUS [None]
  - INTESTINAL PERFORATION [None]
